FAERS Safety Report 7255538-9 (Version None)
Quarter: 2011Q1

REPORT INFORMATION
  Report Type: 
  Country: None (occurrence: None)
  Receive Date: 20110129
  Receipt Date: 20100306
  Transmission Date: 20110831
  Serious: No
  Sender: FDA-Public Use
  Company Number: US-ABBOTT-10P-163-0630926-00

PATIENT
  Sex: Female
  Weight: 66.284 kg

DRUGS (1)
  1. HUMIRA [Suspect]
     Indication: RHEUMATOID ARTHRITIS
     Dates: start: 20100220

REACTIONS (5)
  - FATIGUE [None]
  - INJECTION SITE PAIN [None]
  - MALAISE [None]
  - DIZZINESS [None]
  - NAUSEA [None]
